FAERS Safety Report 19025044 (Version 3)
Quarter: 2021Q3

REPORT INFORMATION
  Report Type: Spontaneous
  Country: US (occurrence: US)
  Receive Date: 20210318
  Receipt Date: 20210714
  Transmission Date: 20211014
  Serious: No
  Sender: FDA-Public Use
  Company Number: US-BAYER-2021-107202

PATIENT
  Age: 39 Year
  Sex: Female

DRUGS (2)
  1. MISOPROSTOL. [Concomitant]
     Active Substance: MISOPROSTOL
  2. MIRENA [Suspect]
     Active Substance: LEVONORGESTREL
     Indication: CONTRACEPTION
     Dosage: 20?G PER DAY, CONTINUOUSLY
     Route: 015
     Dates: start: 20210106, end: 20210106

REACTIONS (4)
  - Procedural pain [Recovered/Resolved]
  - Post procedural discomfort [Recovered/Resolved]
  - Complication of device insertion [None]
  - Device use issue [None]

NARRATIVE: CASE EVENT DATE: 20210106
